FAERS Safety Report 8133520-7 (Version None)
Quarter: 2012Q1

REPORT INFORMATION
  Report Type: 
  Country: None (occurrence: None)
  Receive Date: 20120213
  Receipt Date: 20120207
  Transmission Date: 20120608
  Serious: Yes (Death)
  Sender: FDA-Public Use
  Company Number: US-PFIZER INC-2011049546

PATIENT
  Sex: Female
  Weight: 49.89 kg

DRUGS (8)
  1. VENLAFAXINE HCL [Suspect]
  2. METHYLENEDIOXYMETHAMPHETAMINE [Suspect]
  3. MARIJUANA [Suspect]
  4. ALPRAZOLAM [Suspect]
     Dosage: UNK
  5. DILAUDID [Suspect]
  6. COCAINE [Suspect]
  7. CODEINE [Suspect]
  8. MORPHINE SULFATE [Suspect]

REACTIONS (2)
  - ACCIDENTAL OVERDOSE [None]
  - TOXICITY TO VARIOUS AGENTS [None]
